FAERS Safety Report 8844958 (Version 1)
Quarter: 2012Q4

REPORT INFORMATION
  Report Type: Spontaneous
  Country: US (occurrence: None)
  Receive Date: 20121002
  Receipt Date: 20121002
  Transmission Date: 20130627
  Serious: Yes (Hospitalization)
  Sender: FDA-Public Use
  Company Number: RB-36202-2012

PATIENT
  Age: 37 Year
  Sex: Male

DRUGS (3)
  1. SUBOXONE [Suspect]
     Indication: DRUG DEPENDENCE
     Dosage: Took 4 mg-8mg twice daily Sublingual
     Route: 060
     Dates: start: 2009, end: 20120102
  2. SUBOXONE [Suspect]
     Indication: DRUG DEPENDENCE
  3. SUBOXONE [Suspect]
     Dosage: Took 4mg-8mg twice daily. Sublingual film Sublingual
     Route: 060

REACTIONS (5)
  - Substance abuse [None]
  - Wrong technique in drug usage process [None]
  - Therapeutic response unexpected [None]
  - Drug withdrawal syndrome [None]
  - Insomnia [None]
